FAERS Safety Report 8440501-2 (Version None)
Quarter: 2012Q2

REPORT INFORMATION
  Report Type: 
  Country: None (occurrence: None)
  Receive Date: 20120615
  Receipt Date: 20120607
  Transmission Date: 20120825
  Serious: Yes (Hospitalization)
  Sender: FDA-Public Use
  Company Number: FR-VERTEX PHARMACEUTICALS INC.-000000000000000877

PATIENT
  Sex: Male
  Weight: 66.8 kg

DRUGS (8)
  1. INCIVO [Suspect]
     Indication: HEPATITIS C
     Dosage: DOSAGE FORM: TABLET
     Route: 048
     Dates: start: 20111103, end: 20120125
  2. ATENOLOL [Concomitant]
     Indication: HYPERTENSION
     Dates: start: 19990101
  3. LEVOTHYROXINE SODIUM [Concomitant]
     Indication: HYPOTHYROIDISM
     Dates: start: 19971208
  4. TOCO [Concomitant]
     Indication: INSULIN RESISTANCE
     Dosage: DOSAGE FORM: TABLET
     Dates: start: 20110101
  5. COPEGUS [Concomitant]
     Indication: HEPATITIS C
     Dates: start: 20111103
  6. PEGASYS [Concomitant]
     Indication: HEPATITIS C
     Dates: start: 20111103
  7. POTASSIUM CHLORIDE [Concomitant]
     Indication: HYPOKALAEMIA
     Dates: start: 20120131
  8. VALSARTAN  AND HYDROCHLOROTHIAZIDE [Concomitant]
     Indication: HYPERTENSION
     Dates: start: 19990101

REACTIONS (1)
  - PULMONARY EMBOLISM [None]
